FAERS Safety Report 25864563 (Version 1)
Quarter: 2025Q3

REPORT INFORMATION
  Report Type: Spontaneous
  Country: JP (occurrence: JP)
  Receive Date: 20250930
  Receipt Date: 20250930
  Transmission Date: 20251020
  Serious: Yes (Hospitalization)
  Sender: PFIZER
  Company Number: JP-PFIZER INC-202500193179

PATIENT
  Sex: Female

DRUGS (1)
  1. CIBINQO [Suspect]
     Active Substance: ABROCITINIB
     Indication: Dermatitis atopic
     Dosage: 200 MG, DAILY

REACTIONS (3)
  - Impetigo [Unknown]
  - Oral disorder [Unknown]
  - Dysphagia [Unknown]

NARRATIVE: CASE EVENT DATE: 20250901
